FAERS Safety Report 15429960 (Version 1)
Quarter: 2018Q4

REPORT INFORMATION
  Report Type: Spontaneous
  Country: CA (occurrence: CA)
  Receive Date: 20180926
  Receipt Date: 20180926
  Transmission Date: 20190204
  Serious: Yes (Other)
  Sender: FDA-Public Use
  Company Number: CA-PFIZER INC-2018384084

PATIENT
  Age: 49 Year
  Sex: Male

DRUGS (4)
  1. TYLENOL [Concomitant]
     Active Substance: ACETAMINOPHEN
     Dosage: UNK
     Route: 065
  2. IBUPROFEN. [Suspect]
     Active Substance: IBUPROFEN
     Indication: PAIN
     Dosage: UNK
     Route: 065
  3. PERCOCET [OXYCODONE HYDROCHLORIDE;OXYCODONE TEREPHTHALATE;PARACETAMOL] [Suspect]
     Active Substance: ACETAMINOPHEN\OXYCODONE HYDROCHLORIDE\OXYCODONE TEREPHTHALATE
     Indication: PAIN
     Dosage: UNK
     Route: 065
  4. CELEBREX [Suspect]
     Active Substance: CELECOXIB
     Dosage: UNK
     Route: 065

REACTIONS (7)
  - Arthralgia [Unknown]
  - Somnolence [Unknown]
  - Sleep apnoea syndrome [Unknown]
  - Dyskinesia [Unknown]
  - Joint injury [Unknown]
  - Neuralgia [Unknown]
  - Drug ineffective [Unknown]
